FAERS Safety Report 13348741 (Version 3)
Quarter: 2017Q3

REPORT INFORMATION
  Report Type: Spontaneous
  Country: US (occurrence: US)
  Receive Date: 20170320
  Receipt Date: 20170714
  Transmission Date: 20171127
  Serious: No
  Sender: FDA-Public Use
  Company Number: US-B.I. PHARMACEUTICALS,INC./RIDGEFIELD-2017-BI-014513

PATIENT
  Sex: Male

DRUGS (2)
  1. COMBIVENT [Suspect]
     Active Substance: ALBUTEROL SULFATE\IPRATROPIUM BROMIDE
     Indication: CHRONIC OBSTRUCTIVE PULMONARY DISEASE
     Dosage: 2 INHALATIONS;  FORM STRENGTH: 20 MCG / 100 MCG; FORMULATION: INHALATION SPRAY? ADMINISTRATION CORRE
     Route: 055
     Dates: start: 2014
  2. LISINIPRIL [Concomitant]
     Active Substance: LISINOPRIL
     Indication: HYPERTENSION
     Dosage: 1 TABLET;  FORM STRENGTH: 5MG; FORMULATION: TABLET
     Route: 048

REACTIONS (2)
  - Drug ineffective [Unknown]
  - Product quality issue [Unknown]

NARRATIVE: CASE EVENT DATE: 201702
